FAERS Safety Report 9704869 (Version 2)
Quarter: 2014Q1

REPORT INFORMATION
  Report Type: Report from Study
  Country: BR (occurrence: BR)
  Receive Date: 20131122
  Receipt Date: 20140206
  Transmission Date: 20141002
  Serious: Yes (Hospitalization)
  Sender: FDA-Public Use
  Company Number: BR-ABBVIE-13P-020-1169600-00

PATIENT
  Age: 54 Year
  Sex: Female
  Weight: 68 kg

DRUGS (14)
  1. HUMIRA [Suspect]
     Indication: CROHN^S DISEASE
     Route: 058
     Dates: start: 20110203
  2. ESCITALOPRAM [Suspect]
     Indication: ANXIETY
     Route: 048
     Dates: start: 20140122
  3. PANTOPRAZOLE [Concomitant]
     Indication: GASTRIC DISORDER
     Route: 048
     Dates: start: 20121114
  4. CLOPIDOGREL BISULFATE [Concomitant]
     Indication: ANTICOAGULANT THERAPY
     Dosage: 1 TABLET AFTER LUNCH
     Route: 048
     Dates: start: 20130906, end: 20140122
  5. AAS [Concomitant]
     Indication: ANTICOAGULANT THERAPY
     Dosage: 1 TABLET AFTER LUNCH
     Route: 048
     Dates: start: 20130906
  6. ATORVASTATIN [Concomitant]
     Indication: BLOOD CHOLESTEROL ABNORMAL
     Route: 048
  7. ATORVASTATIN [Concomitant]
     Dosage: 1 TABLET AFTER DINNER
     Route: 048
  8. ENALAPRIL MALEATE [Concomitant]
     Indication: HYPERTENSION
     Dosage: 1 TABLET IN THE MORNING AND 1 TABLET AT NIGHT.
     Route: 048
     Dates: start: 20130906
  9. BROMIDE OTILONIO (LONIUM) [Concomitant]
     Indication: FLATULENCE
     Route: 048
     Dates: start: 20130906
  10. BROMIDE OTILONIO (LONIUM) [Concomitant]
     Indication: PROPHYLAXIS
  11. DIPYRONE [Concomitant]
     Indication: PAIN
     Route: 048
     Dates: start: 20130906
  12. FORASEQ [Concomitant]
     Indication: ASTHMA
     Dosage: FORM OF ADMINISTRATION: INHALANT/SPRAY, ONCE A DAY
  13. NASONEX [Concomitant]
     Indication: NASAL DISORDER
     Dosage: FORM OF ADMINISTRATION: INHALANT/SPRAY??2 PUFFS IN EACH NOSTRIL,TWICE A DAY
     Route: 045
     Dates: start: 2003
  14. NASONEX [Concomitant]
     Indication: RHINITIS

REACTIONS (3)
  - Coronary artery dissection [Recovering/Resolving]
  - Acute myocardial infarction [Recovering/Resolving]
  - Pain in extremity [Recovering/Resolving]
